FAERS Safety Report 7058462-X (Version None)
Quarter: 2010Q4

REPORT INFORMATION
  Report Type: 
  Country: None (occurrence: None)
  Receive Date: 20101022
  Receipt Date: 20101014
  Transmission Date: 20110411
  Serious: Yes (Hospitalization)
  Sender: FDA-Public Use
  Company Number: GXKR2010PL11660

PATIENT
  Sex: Female
  Weight: 60 kg

DRUGS (3)
  1. METHOTREXATE (NGX) [Suspect]
     Indication: RHEUMATOID ARTHRITIS
     Dosage: 15 MG/WEEK
     Route: 048
     Dates: start: 20100701, end: 20100901
  2. METYPRED ^UNS^ [Concomitant]
     Indication: RHEUMATOID ARTHRITIS
     Dosage: 8 MG/DAY
     Route: 048
     Dates: start: 20070101
  3. NIMESIL [Concomitant]
     Indication: RHEUMATOID ARTHRITIS
     Dosage: 100 MG/DAY
     Route: 048
     Dates: start: 20100628, end: 20100912

REACTIONS (5)
  - ANAEMIA [None]
  - ASTHENIA [None]
  - C-REACTIVE PROTEIN INCREASED [None]
  - MYALGIA [None]
  - RED BLOOD CELL SEDIMENTATION RATE INCREASED [None]
